FAERS Safety Report 5589843-9 (Version None)
Quarter: 2008Q1

REPORT INFORMATION
  Report Type: 
  Country: None (occurrence: None)
  Receive Date: 20080114
  Receipt Date: 20010223
  Transmission Date: 20080703
  Serious: Yes (Hospitalization)
  Sender: FDA-Public Use
  Company Number: FR-MERCK-01026157M

PATIENT
  Age: 34 Year
  Sex: Female

DRUGS (10)
  1. COZAAR [Suspect]
     Indication: HYPERTENSION
     Route: 048
     Dates: start: 20000917, end: 20010130
  2. METHYLDOPA [Concomitant]
     Indication: HYPERTENSION
     Route: 048
     Dates: end: 20000101
  3. CLONIDINE HYDROCHLORIDE [Concomitant]
     Indication: HYPERTENSION
     Route: 048
     Dates: end: 20000101
  4. PROPOFOL [Concomitant]
     Indication: ANAESTHESIA
     Route: 042
     Dates: start: 20001206, end: 20001206
  5. ISOFLURANE [Concomitant]
     Indication: ANAESTHESIA
     Dates: start: 20001206, end: 20001206
  6. CEFATRIZINE [Concomitant]
     Indication: NASOPHARYNGITIS
     Route: 065
     Dates: start: 20001225
  7. ALPHA AMYLASE [Concomitant]
     Indication: NASOPHARYNGITIS
     Route: 065
     Dates: start: 20001225
  8. ACETAMINOPHEN [Concomitant]
     Indication: NASOPHARYNGITIS
     Route: 065
  9. HELICIDINE [Concomitant]
     Indication: NASOPHARYNGITIS
     Route: 065
  10. TRIAMCINOLONE ACETONIDE [Concomitant]
     Indication: NASOPHARYNGITIS

REACTIONS (6)
  - DRUG EXPOSURE DURING PREGNANCY [None]
  - METRORRHAGIA [None]
  - NASOPHARYNGITIS [None]
  - OLIGOHYDRAMNIOS [None]
  - OVARIAN CYST [None]
  - PYREXIA [None]
